FAERS Safety Report 6456410-4 (Version None)
Quarter: 2009Q4

REPORT INFORMATION
  Report Type: 
  Country: None (occurrence: None)
  Receive Date: 20091125
  Receipt Date: 20091118
  Transmission Date: 20100525
  Serious: Yes (Hospitalization, Other)
  Sender: FDA-Public Use
  Company Number: AR-PFIZER INC-2009285937

PATIENT
  Age: 49 Year
  Sex: Female
  Weight: 60 kg

DRUGS (5)
  1. FARLUTAL [Suspect]
     Indication: OFF LABEL USE
     Dosage: 10 MG, 3X/DAY
     Route: 048
     Dates: start: 20091010, end: 20091029
  2. FARLUTAL [Suspect]
     Indication: MENORRHAGIA
  3. DIGOXIN [Concomitant]
     Dosage: UNK
     Route: 048
     Dates: start: 19990101
  4. CARVEDILOL [Concomitant]
     Dosage: UNK
     Route: 048
     Dates: start: 20020101
  5. SINTROM [Concomitant]
     Dosage: UNK
     Route: 048
     Dates: start: 19990101

REACTIONS (4)
  - ANAEMIA [None]
  - ASTHENIA [None]
  - CARDIAC FAILURE [None]
  - DRUG INEFFECTIVE FOR UNAPPROVED INDICATION [None]
